FAERS Safety Report 9319650 (Version 5)
Quarter: 2015Q2

REPORT INFORMATION
  Report Type: Spontaneous
  Country: US (occurrence: US)
  Receive Date: 20130530
  Receipt Date: 20150515
  Transmission Date: 20150821
  Serious: No
  Sender: FDA-Public Use
  Company Number: US-GLAXOSMITHKLINE-A1019338A

PATIENT

DRUGS (6)
  1. REVATIO [Concomitant]
     Active Substance: SILDENAFIL CITRATE
  2. COUMADIN [Concomitant]
     Active Substance: WARFARIN SODIUM
  3. FLOLAN [Suspect]
     Active Substance: EPOPROSTENOL SODIUM
     Dosage: UNK
     Dates: start: 19990907
  4. FLOLAN [Suspect]
     Active Substance: EPOPROSTENOL SODIUM
     Indication: PULMONARY ARTERIAL HYPERTENSION
     Dosage: 22 NG/KG/MIN, 1.5 MG VIAL STRENGTH, 30,000 NG/ML CONCENTRATION, PUMP RATE 73 ML/DAY.
     Route: 042
     Dates: start: 19990907
  5. FLOLAN [Suspect]
     Active Substance: EPOPROSTENOL SODIUM
     Dosage: 15NG/KG/MIN CONTINUOUSLY
     Dates: start: 19990907
  6. LASIX [Concomitant]
     Active Substance: FUROSEMIDE

REACTIONS (4)
  - Malaise [Recovered/Resolved]
  - Anaemia [Recovered/Resolved]
  - Aphonia [Recovered/Resolved]
  - Weight decreased [Recovered/Resolved]
